FAERS Safety Report 7953702-4 (Version None)
Quarter: 2011Q4

REPORT INFORMATION
  Report Type: 
  Country: None (occurrence: None)
  Receive Date: 20111202
  Receipt Date: 20111125
  Transmission Date: 20120403
  Serious: Yes (Hospitalization, Other)
  Sender: FDA-Public Use
  Company Number: BR-ABBOTT-11P-020-0704335-00

PATIENT
  Sex: Female

DRUGS (5)
  1. HUMIRA [Suspect]
     Indication: PSORIASIS
     Dates: start: 20100308
  2. OMEPRAZOLE [Concomitant]
     Indication: PRODUCT USED FOR UNKNOWN INDICATION
     Dosage: BEFORE TAKING IBUPROFEN
     Route: 048
  3. IBUPROFEN [Concomitant]
     Indication: BACK PAIN
     Route: 048
  4. ACETAMINOPHEN [Concomitant]
     Indication: HEADACHE
     Dosage: 750MG OR 500MG
     Route: 048
  5. SIMVASTATIN [Concomitant]
     Indication: BLOOD CHOLESTEROL INCREASED

REACTIONS (7)
  - ABDOMINAL PAIN UPPER [None]
  - PAIN [None]
  - BLOOD CHOLESTEROL [None]
  - APPENDICITIS [None]
  - COLD SWEAT [None]
  - BLOOD CHOLESTEROL ABNORMAL [None]
  - THERAPEUTIC RESPONSE UNEXPECTED [None]
